FAERS Safety Report 13168156 (Version 1)
Quarter: 2017Q1

REPORT INFORMATION
  Report Type: Report from Study
  Country: BR (occurrence: BR)
  Receive Date: 20170131
  Receipt Date: 20170131
  Transmission Date: 20170428
  Serious: Yes (Other)
  Sender: FDA-Public Use
  Company Number: PHHY2017BR013348

PATIENT
  Age: 35 Year
  Sex: Female

DRUGS (1)
  1. TRILEPTAL [Suspect]
     Active Substance: OXCARBAZEPINE
     Indication: PRODUCT USED FOR UNKNOWN INDICATION
     Dosage: 600 MG, UNK
     Route: 065

REACTIONS (7)
  - Screaming [Unknown]
  - Syncope [Unknown]
  - Drug intolerance [Unknown]
  - Cerebral disorder [Unknown]
  - Memory impairment [Unknown]
  - Fall [Unknown]
  - Feeling abnormal [Unknown]
